FAERS Safety Report 10050068 (Version 1)
Quarter: 2014Q2

REPORT INFORMATION
  Report Type: Spontaneous
  Country: DK (occurrence: DK)
  Receive Date: 20140401
  Receipt Date: 20140401
  Transmission Date: 20141212
  Serious: Yes (Hospitalization)
  Sender: FDA-Public Use
  Company Number: DK-SA-2014SA040188

PATIENT
  Sex: 0

DRUGS (2)
  1. DESMOPRESSIN ACETATE [Suspect]
     Indication: NOCTURIA
     Route: 065
  2. DESMOPRESSIN ACETATE [Suspect]
     Indication: NOCTURIA
     Route: 065

REACTIONS (2)
  - Hyponatraemia [Unknown]
  - Mania [Recovered/Resolved]
